FAERS Safety Report 7369150-4 (Version None)
Quarter: 2011Q1

REPORT INFORMATION
  Report Type: 
  Country: None (occurrence: None)
  Receive Date: 20110323
  Receipt Date: 20110318
  Transmission Date: 20110831
  Serious: No
  Sender: FDA-Public Use
  Company Number: US-PFIZER INC-2011020177

PATIENT
  Sex: Female
  Weight: 16.417 kg

DRUGS (1)
  1. GENOTROPIN [Suspect]
     Indication: DWARFISM
     Dosage: 0.7 MG, 1X/DAY
     Route: 051
     Dates: start: 20110117

REACTIONS (2)
  - INJECTION SITE INJURY [None]
  - INCORRECT DOSE ADMINISTERED [None]
